FAERS Safety Report 4813958-3 (Version None)
Quarter: 2005Q4

REPORT INFORMATION
  Report Type: 
  Country: None (occurrence: None)
  Receive Date: 20051028
  Receipt Date: 20041117
  Transmission Date: 20060501
  Serious: No
  Sender: FDA-Public Use
  Company Number: US-GLAXOSMITHKLINE-A0534305A

PATIENT
  Age: 80 Year
  Sex: Female

DRUGS (3)
  1. SEREVENT [Suspect]
     Indication: BRONCHOSPASM
     Dosage: 50MCG TWICE PER DAY
     Route: 055
  2. ASMACORT [Concomitant]
  3. PROTONIX [Concomitant]

REACTIONS (2)
  - BRONCHITIS [None]
  - PHARMACEUTICAL PRODUCT COMPLAINT [None]
